FAERS Safety Report 19859973 (Version 2)
Quarter: 2021Q4

REPORT INFORMATION
  Report Type: Spontaneous
  Country: US (occurrence: US)
  Receive Date: 20210921
  Receipt Date: 20211013
  Transmission Date: 20220304
  Serious: Yes (Other)
  Sender: FDA-Public Use
  Company Number: US-BAYER-2021A214170

PATIENT
  Age: 31 Year
  Sex: Female
  Weight: 54.88 kg

DRUGS (1)
  1. SKYLA [Suspect]
     Active Substance: LEVONORGESTREL
     Indication: Contraception
     Dosage: 14 ?G, CONT
     Route: 015
     Dates: start: 20191217, end: 20210908

REACTIONS (2)
  - Uterine perforation [Recovered/Resolved]
  - Device issue [None]

NARRATIVE: CASE EVENT DATE: 20210825
